FAERS Safety Report 10578537 (Version 1)
Quarter: 2014Q4

REPORT INFORMATION
  Report Type: Spontaneous
  Country: CH (occurrence: CH)
  Receive Date: 20141112
  Receipt Date: 20141112
  Transmission Date: 20150529
  Serious: Yes (Hospitalization)
  Sender: FDA-Public Use
  Company Number: CH-TEVA-520493ISR

PATIENT
  Age: 21 Year
  Sex: Female
  Weight: 51 kg

DRUGS (3)
  1. AMOXI-MEPHA 1000 [Suspect]
     Active Substance: AMOXICILLIN
     Indication: ACUTE TONSILLITIS
     Route: 048
     Dates: start: 20140705, end: 20140711
  2. NEOCITRAN [Concomitant]
     Indication: ACUTE TONSILLITIS
     Route: 048
     Dates: start: 20140705, end: 201407
  3. CINNABARIS [Concomitant]
     Indication: ACUTE TONSILLITIS
     Route: 065
     Dates: start: 20140705, end: 201407

REACTIONS (7)
  - Swelling face [Recovered/Resolved]
  - Pruritus [Recovered/Resolved]
  - Drug hypersensitivity [Not Recovered/Not Resolved]
  - Rash maculo-papular [Recovered/Resolved]
  - C-reactive protein increased [None]
  - Type IV hypersensitivity reaction [Recovered/Resolved]
  - Skin test positive [Recovered/Resolved]

NARRATIVE: CASE EVENT DATE: 20140712
